FAERS Safety Report 6268540-0 (Version None)
Quarter: 2009Q3

REPORT INFORMATION
  Report Type: 
  Country: None (occurrence: None)
  Receive Date: 20090715
  Receipt Date: 20090713
  Transmission Date: 20100115
  Serious: Yes (Hospitalization)
  Sender: FDA-Public Use
  Company Number: AR-BRISTOL-MYERS SQUIBB COMPANY-14695241

PATIENT
  Age: 68 Year
  Sex: Female

DRUGS (7)
  1. ABATACEPT [Suspect]
     Indication: RHEUMATOID ARTHRITIS
     Dosage: NO OF COURSES:14
     Route: 058
     Dates: start: 20090403
  2. METHOTREXATE [Suspect]
     Indication: RHEUMATOID ARTHRITIS
     Dates: start: 20090626, end: 20090705
  3. PREDNISONE TAB [Concomitant]
     Dates: start: 20090626, end: 20090705
  4. FOLIC ACID [Concomitant]
     Dates: start: 20060216, end: 20090705
  5. DULOXETINE HCL [Concomitant]
     Dates: start: 20090626
  6. LEVOTHYROXINE SODIUM [Concomitant]
     Dates: start: 20090420
  7. ZOLPIDEM [Concomitant]
     Dates: start: 20090403

REACTIONS (7)
  - DEHYDRATION [None]
  - LOBAR PNEUMONIA [None]
  - MALAISE [None]
  - RENAL FAILURE ACUTE [None]
  - SOMNOLENCE [None]
  - SYNCOPE [None]
  - VIRAL INFECTION [None]
